FAERS Safety Report 8556732-7 (Version None)
Quarter: 2012Q3

REPORT INFORMATION
  Report Type: 
  Country: None (occurrence: None)
  Receive Date: 20120801
  Receipt Date: 20120719
  Transmission Date: 20120928
  Serious: Yes (Hospitalization, Other)
  Sender: FDA-Public Use
  Company Number: BE-PFIZER INC-2012174801

PATIENT
  Age: 85 Year
  Sex: Female
  Weight: 61.5 kg

DRUGS (7)
  1. BISOPROLOL [Concomitant]
     Dosage: 2.5 MG, UNK
     Route: 065
  2. VENLAFAXINE HCL [Suspect]
     Indication: DEPRESSION
     Dosage: 150 MG, UNK
  3. LEKOVIT CA [Concomitant]
     Dosage: 20 MG, UNK
     Route: 065
  4. MIRTAZAPINE [Interacting]
     Indication: DEPRESSION
     Dosage: 30 MG, UNK
  5. LEVOTHYROXINE [Concomitant]
     Dosage: 125 UG, UNK
     Route: 065
  6. SODIUM PICOSULFATE [Concomitant]
     Route: 065
  7. PANTOPRAZOLE [Concomitant]
     Dosage: 20 MG, UNK
     Route: 065

REACTIONS (28)
  - DRUG INTERACTION [None]
  - BREATH SOUNDS ABNORMAL [None]
  - BLOOD LACTIC ACID DECREASED [None]
  - HYPERTONIA [None]
  - MYOCLONUS [None]
  - PYURIA [None]
  - EPILEPSY [None]
  - TACHYCARDIA [None]
  - EXTENSOR PLANTAR RESPONSE [None]
  - SEROTONIN SYNDROME [None]
  - HYPERTENSION [None]
  - EYE MOVEMENT DISORDER [None]
  - METABOLIC ENCEPHALOPATHY [None]
  - DEHYDRATION [None]
  - AMNESIA [None]
  - URINARY TRACT INFECTION [None]
  - MYDRIASIS [None]
  - CONFUSIONAL STATE [None]
  - SEDATION [None]
  - BLOOD CREATINE PHOSPHOKINASE INCREASED [None]
  - REFLEXES ABNORMAL [None]
  - HYPERHIDROSIS [None]
  - DEPRESSED LEVEL OF CONSCIOUSNESS [None]
  - INFLAMMATION [None]
  - LOSS OF CONSCIOUSNESS [None]
  - UNRESPONSIVE TO STIMULI [None]
  - HYPERREFLEXIA [None]
  - AKATHISIA [None]
